FAERS Safety Report 16561360 (Version 2)
Quarter: 2019Q3

REPORT INFORMATION
  Report Type: Spontaneous
  Country: US (occurrence: US)
  Receive Date: 20190711
  Receipt Date: 20190826
  Transmission Date: 20191004
  Serious: Yes (Other)
  Sender: FDA-Public Use
  Company Number: US-BAYER-2019-131054

PATIENT
  Age: 18 Year
  Sex: Female
  Weight: 80.74 kg

DRUGS (6)
  1. NEXPLANON [Concomitant]
     Active Substance: ETONOGESTREL
     Indication: CONTRACEPTION
     Dosage: UNK
     Route: 059
     Dates: start: 20190716
  2. MIRENA [Suspect]
     Active Substance: LEVONORGESTREL
     Indication: CONTRACEPTION
     Dosage: UNK
  3. MIRENA [Suspect]
     Active Substance: LEVONORGESTREL
     Indication: CONTRACEPTION
     Dosage: 20 MCG/24HR, CONT
     Route: 015
     Dates: start: 20190129, end: 20190605
  4. ONDANSETRON [Concomitant]
     Active Substance: ONDANSETRON
  5. VENTOLIN HFA [Concomitant]
     Active Substance: ALBUTEROL SULFATE
  6. NAPROXEN SODIUM. [Concomitant]
     Active Substance: NAPROXEN SODIUM
     Route: 048

REACTIONS (7)
  - Vaginal haemorrhage [None]
  - Menorrhagia [None]
  - Abdominal pain lower [Not Recovered/Not Resolved]
  - Device dislocation [Recovered/Resolved]
  - Ovarian cyst [None]
  - Genital haemorrhage [None]
  - Pain [None]

NARRATIVE: CASE EVENT DATE: 20190416
